FAERS Safety Report 5838958-6 (Version None)
Quarter: 2008Q3

REPORT INFORMATION
  Report Type: 
  Country: None (occurrence: None)
  Receive Date: 20080808
  Receipt Date: 20080808
  Transmission Date: 20090109
  Serious: Yes (Death, Life-Threatening, Hospitalization)
  Sender: FDA-Public Use
  Company Number: PHHO2003GB05380

PATIENT
  Sex: Male
  Weight: 90 kg

DRUGS (7)
  1. CERTICAN [Suspect]
     Indication: HEART TRANSPLANT
     Dosage: UNK
     Route: 048
     Dates: start: 20000201
  2. CERTICAN [Suspect]
     Indication: HEART TRANSPLANT
     Dosage: 6 TABLETS/DAY
     Route: 048
     Dates: end: 20030428
  3. NEORAL [Suspect]
     Indication: HEART TRANSPLANT
     Dosage: 75 MG, BID
     Route: 048
     Dates: start: 20000201
  4. NEORAL [Concomitant]
     Dosage: 50 MG, BID
     Route: 048
  5. PREDNISOLONE [Concomitant]
     Indication: HEART TRANSPLANT
     Dosage: 7.5 MG, QD
     Route: 048
     Dates: start: 20000201
  6. DOXAZOSIN MESYLATE [Concomitant]
     Indication: HYPERTENSION
     Dosage: 2 MG, QD
     Route: 048
     Dates: start: 20020104
  7. VALSARTAN [Concomitant]
     Indication: HYPERTENSION
     Dosage: 80 MG, BID
     Route: 048
     Dates: start: 20001021

REACTIONS (18)
  - AFFECT LABILITY [None]
  - BLINDNESS CORTICAL [None]
  - CEREBRAL DISORDER [None]
  - COMA [None]
  - CONFUSIONAL STATE [None]
  - CREUTZFELDT-JAKOB DISEASE [None]
  - DEMYELINATION [None]
  - DISEASE PROGRESSION [None]
  - DIZZINESS [None]
  - DRUG LEVEL DECREASED [None]
  - DYSARTHRIA [None]
  - ELECTROENCEPHALOGRAM ABNORMAL [None]
  - EMOTIONAL DISTRESS [None]
  - HEADACHE [None]
  - INFECTION [None]
  - PALPITATIONS [None]
  - PARKINSONIAN REST TREMOR [None]
  - SIMPLE PARTIAL SEIZURES [None]
